FAERS Safety Report 19212466 (Version 1)
Quarter: 2021Q2

REPORT INFORMATION
  Report Type: Spontaneous
  Country: GB (occurrence: GB)
  Receive Date: 20210504
  Receipt Date: 20210504
  Transmission Date: 20210717
  Serious: Yes (Other)
  Sender: FDA-Public Use
  Company Number: GB-MYLANLABS-2021M1026012

PATIENT
  Age: 57 Year
  Sex: Female
  Weight: 69 kg

DRUGS (2)
  1. CLARITHROMYCIN. [Suspect]
     Active Substance: CLARITHROMYCIN
     Indication: ILL-DEFINED DISORDER
     Dosage: 500 MILLIGRAM
     Route: 048
     Dates: start: 20210111, end: 20210115
  2. CLARITHROMYCIN. [Suspect]
     Active Substance: CLARITHROMYCIN
     Indication: STREPTOCOCCAL INFECTION

REACTIONS (4)
  - Product prescribing issue [Unknown]
  - Palpitations [Recovered/Resolved]
  - Anxiety [Unknown]
  - Arrhythmia [Recovered/Resolved]

NARRATIVE: CASE EVENT DATE: 20210111
